FAERS Safety Report 23834914 (Version 1)
Quarter: 2024Q2

REPORT INFORMATION
  Report Type: Spontaneous
  Country: US (occurrence: None)
  Receive Date: 20240509
  Receipt Date: 20240509
  Transmission Date: 20240715
  Serious: No
  Sender: FDA-Public Use
  Company Number: 2024A102493

PATIENT
  Sex: Male

DRUGS (7)
  1. FASENRA [Suspect]
     Active Substance: BENRALIZUMAB
     Indication: Asthma
     Route: 058
  2. TRANEXAMIC ACID [Concomitant]
     Active Substance: TRANEXAMIC ACID
  3. MONTELUKAST SODIUM [Concomitant]
     Active Substance: MONTELUKAST SODIUM
  4. QULIPTA [Concomitant]
     Active Substance: ATOGEPANT
  5. UBRELVY [Concomitant]
     Active Substance: UBROGEPANT
  6. PANTOPRAZOLE SODIUM [Concomitant]
     Active Substance: PANTOPRAZOLE SODIUM
  7. PEPCID [Concomitant]
     Active Substance: FAMOTIDINE

REACTIONS (2)
  - Dermatitis atopic [Unknown]
  - Migraine [Unknown]
